FAERS Safety Report 8542578-2 (Version None)
Quarter: 2012Q3

REPORT INFORMATION
  Report Type: 
  Country: None (occurrence: None)
  Receive Date: 20120726
  Receipt Date: 20120710
  Transmission Date: 20120928
  Serious: Yes (Hospitalization)
  Sender: FDA-Public Use
  Company Number: US-009507513-1207USA005379

PATIENT

DRUGS (7)
  1. ASPIRIN [Concomitant]
  2. MUCINEX [Concomitant]
  3. TYLENOL [Concomitant]
  4. CLARITIN [Suspect]
  5. ZOCOR [Suspect]
     Dosage: UNK
     Route: 050
  6. PROPRANOLOL AL [Concomitant]
  7. FLUTICASONE PROPIONATE [Concomitant]

REACTIONS (6)
  - GRANULOMA [None]
  - DIZZINESS [None]
  - CRYPTOCOCCAL CUTANEOUS INFECTION [None]
  - LUNG INFECTION [None]
  - WEIGHT DECREASED [None]
  - HEADACHE [None]
